FAERS Safety Report 25706578 (Version 5)
Quarter: 2025Q4

REPORT INFORMATION
  Report Type: Spontaneous
  Country: JP (occurrence: JP)
  Receive Date: 20250820
  Receipt Date: 20251014
  Transmission Date: 20260118
  Serious: Yes (Death, Life-Threatening, Other)
  Sender: AMGEN
  Company Number: JP-AMGEN-JPNSP2025161690

PATIENT
  Age: 8 Decade
  Sex: Male

DRUGS (3)
  1. BLINCYTO [Suspect]
     Active Substance: BLINATUMOMAB
     Indication: B precursor type acute leukaemia
     Dosage: UNK, DRIP INFUSION
     Route: 040
     Dates: start: 20250808, end: 202508
  2. BLINCYTO [Suspect]
     Active Substance: BLINATUMOMAB
     Dosage: UNK, DRIP INFUSION
     Route: 040
     Dates: start: 202508, end: 2025
  3. ZYVOX [Concomitant]
     Active Substance: LINEZOLID
     Dosage: UNK
     Route: 065

REACTIONS (8)
  - Melaena [Not Recovered/Not Resolved]
  - Disease progression [Fatal]
  - Haematochezia [Recovered/Resolved]
  - Neutrophil count decreased [Not Recovered/Not Resolved]
  - Cytokine release syndrome [Recovered/Resolved]
  - Blood culture positive [Unknown]
  - Abdominal pain lower [Unknown]
  - Flank pain [Unknown]

NARRATIVE: CASE EVENT DATE: 20250809
